FAERS Safety Report 23446651 (Version 1)
Quarter: 2024Q1

REPORT INFORMATION
  Report Type: Spontaneous
  Country: US (occurrence: US)
  Receive Date: 20240126
  Receipt Date: 20240126
  Transmission Date: 20240409
  Serious: No
  Sender: FDA-Public Use
  Company Number: US-PFIZER INC-PV202400007537

PATIENT
  Age: 68 Year
  Sex: Male

DRUGS (14)
  1. XELJANZ XR [Suspect]
     Active Substance: TOFACITINIB CITRATE
     Dosage: 11 MG
  2. ACETAMINOPHEN [Concomitant]
     Active Substance: ACETAMINOPHEN
  3. ASPIRIN [Concomitant]
     Active Substance: ASPIRIN
  4. CALCIUM [Concomitant]
     Active Substance: CALCIUM
  5. CYCLOBENZAPRINE [Concomitant]
     Active Substance: CYCLOBENZAPRINE
  6. DOCUSATE [Concomitant]
     Active Substance: DOCUSATE
  7. DONEPEZIL [Concomitant]
     Active Substance: DONEPEZIL
  8. DULOXETINE [Concomitant]
     Active Substance: DULOXETINE
  9. FOLIC ACID [Concomitant]
     Active Substance: FOLIC ACID
  10. FUROSEMIDE [Concomitant]
     Active Substance: FUROSEMIDE
  11. HYDROXYCHLOROQUINE [Concomitant]
     Active Substance: HYDROXYCHLOROQUINE
  12. INSULIN NOS [Concomitant]
     Active Substance: INSULIN NOS
  13. LANSOPRAZOLE [Concomitant]
     Active Substance: LANSOPRAZOLE
  14. LOSARTAN [Concomitant]
     Active Substance: LOSARTAN

REACTIONS (2)
  - Pain [Unknown]
  - Hypokinesia [Unknown]
